FAERS Safety Report 21905696 (Version 1)
Quarter: 2023Q1

REPORT INFORMATION
  Report Type: Report from Study
  Country: JP (occurrence: None)
  Receive Date: 20230124
  Receipt Date: 20230124
  Transmission Date: 20230418
  Serious: Yes (Disabling, Other)
  Sender: FDA-Public Use
  Company Number: JP-Merck Healthcare KGaA-9354883

PATIENT
  Age: 71 Year
  Sex: Male
  Weight: 70 kg

DRUGS (5)
  1. BAVENCIO [Suspect]
     Active Substance: AVELUMAB
     Indication: Renal cell carcinoma
     Route: 041
     Dates: start: 20210208
  2. BAVENCIO [Suspect]
     Active Substance: AVELUMAB
     Route: 041
     Dates: start: 20210510
  3. BAVENCIO [Suspect]
     Active Substance: AVELUMAB
     Route: 041
     Dates: start: 20210719
  4. INLYTA [Suspect]
     Active Substance: AXITINIB
     Indication: Renal cell carcinoma
     Dates: start: 20210208, end: 20210222
  5. ACETAMINOPHEN [Concomitant]
     Active Substance: ACETAMINOPHEN
     Indication: Premedication
     Route: 048
     Dates: start: 20210222

REACTIONS (9)
  - Thyroid disorder [Recovered/Resolved]
  - Adrenal disorder [Not Recovered/Not Resolved]
  - Blood thyroid stimulating hormone abnormal [Recovered/Resolved]
  - Infusion related reaction [Not Recovered/Not Resolved]
  - Blood pressure increased [Not Recovered/Not Resolved]
  - Myocarditis [Recovered/Resolved]
  - Protein urine present [Unknown]
  - Disease progression [Unknown]
  - Malaise [Unknown]

NARRATIVE: CASE EVENT DATE: 20210223
